FAERS Safety Report 4763403-1 (Version None)
Quarter: 2005Q3

REPORT INFORMATION
  Report Type: 
  Country: None (occurrence: None)
  Receive Date: 20050901
  Receipt Date: 20050707
  Transmission Date: 20060218
  Serious: No
  Sender: FDA-Public Use
  Company Number: 200511362BWH

PATIENT
  Age: 82 Year
  Sex: Male

DRUGS (2)
  1. LEVITRA [Suspect]
     Dosage: 20 MG, TOTAL DAILY, ORAL
     Route: 048
  2. CELEBREX [Concomitant]

REACTIONS (1)
  - DRUG INEFFECTIVE [None]
